FAERS Safety Report 6468632-7 (Version None)
Quarter: 2009Q4

REPORT INFORMATION
  Report Type: 
  Country: None (occurrence: None)
  Receive Date: 20091203
  Receipt Date: 20091127
  Transmission Date: 20100525
  Serious: Yes (Life-Threatening, Hospitalization)
  Sender: FDA-Public Use
  Company Number: DE-ASTRAZENECA-2009SE26163

PATIENT
  Age: 17327 Day
  Sex: Male
  Weight: 86 kg

DRUGS (2)
  1. ATACAND [Suspect]
     Indication: HYPERTENSION
     Route: 048
     Dates: start: 20090101
  2. AMLODIPINE [Concomitant]
     Indication: HYPERTENSION
     Route: 048
     Dates: start: 20090101, end: 20091023

REACTIONS (1)
  - LUNG ABSCESS [None]
